FAERS Safety Report 4264825-8 (Version None)
Quarter: 2004Q1

REPORT INFORMATION
  Report Type: 
  Country: None (occurrence: None)
  Receive Date: 20040105
  Receipt Date: 20031219
  Transmission Date: 20041129
  Serious: Yes (Hospitalization)
  Sender: FDA-Public Use
  Company Number: 200314870FR

PATIENT
  Age: 56 Year
  Sex: Female

DRUGS (11)
  1. FUROSEMIDE [Suspect]
     Dosage: 40 MG/DAY PO
     Dates: start: 20030423, end: 20030425
  2. ANTITHYMOCYTE IMMUNOGLOBULIN (THYMOGLOBULINE) [Suspect]
     Dosage: IV
     Route: 042
     Dates: start: 20030419
  3. PROGRAF [Suspect]
     Dosage: 4.5 MG BID PO
     Dates: start: 20030419
  4. AMLODIPINE BESYLATE [Suspect]
     Dosage: PO
     Dates: start: 20030423, end: 20030425
  5. PREDNISONE [Concomitant]
  6. MYCOPHENOLATE MOFETIL (CELLCEPT) [Concomitant]
  7. OMEPRAZOLE [Concomitant]
  8. SOTALOL HCL [Concomitant]
  9. SODIUM BICARBONATE, SODIUM ALGINATE (GAVISCON) [Concomitant]
  10. COZAAR [Concomitant]
  11. MACROGOL (FORLAX) [Concomitant]

REACTIONS (1)
  - CYTOLYTIC HEPATITIS [None]
